FAERS Safety Report 9816987 (Version 1)
Quarter: 2014Q1

REPORT INFORMATION
  Report Type: Spontaneous
  Country: JP (occurrence: JP)
  Receive Date: 20140114
  Receipt Date: 20140114
  Transmission Date: 20141002
  Serious: Yes (Other)
  Sender: FDA-Public Use
  Company Number: JP-GLAXOSMITHKLINE-B0959450A

PATIENT
  Sex: Male

DRUGS (8)
  1. ALLERMIST [Suspect]
     Indication: PRODUCT USED FOR UNKNOWN INDICATION
     Route: 045
     Dates: end: 201306
  2. CELLCEPT [Concomitant]
     Route: 048
  3. GRACEPTOR [Concomitant]
     Route: 048
  4. URIEF [Concomitant]
     Route: 048
  5. PROMAC [Concomitant]
     Route: 048
  6. RENIVACE [Concomitant]
     Route: 048
  7. AMARYL [Concomitant]
     Route: 048
  8. GLUCOBAY [Concomitant]
     Route: 048

REACTIONS (7)
  - Convulsion [Unknown]
  - Skin exfoliation [Unknown]
  - Tinnitus [Unknown]
  - Pharyngeal oedema [Unknown]
  - Feeling abnormal [Unknown]
  - Head discomfort [Unknown]
  - Sinusitis [Unknown]
